FAERS Safety Report 21940665 (Version 1)
Quarter: 2023Q1

REPORT INFORMATION
  Report Type: Report from Study
  Country: IE (occurrence: IE)
  Receive Date: 20230201
  Receipt Date: 20230201
  Transmission Date: 20230417
  Serious: No
  Sender: FDA-Public Use
  Company Number: IE-EXELIXIS-CABO-22052003

PATIENT
  Age: 56 Year
  Sex: Male

DRUGS (2)
  1. CABOMETYX [Suspect]
     Active Substance: CABOZANTINIB S-MALATE
     Indication: Metastatic renal cell carcinoma
     Dosage: 60 MG
     Route: 048
     Dates: start: 20220420, end: 202207
  2. CABOMETYX [Suspect]
     Active Substance: CABOZANTINIB S-MALATE
     Dosage: UNK, AS PER PRESCRIPTION (REDUCED DOSE)
     Route: 048

REACTIONS (7)
  - Erythema [Unknown]
  - Blood urine present [Unknown]
  - Oral pain [Unknown]
  - Nausea [Not Recovered/Not Resolved]
  - Pain in extremity [Recovering/Resolving]
  - Cough [Unknown]
  - Protein urine present [Unknown]

NARRATIVE: CASE EVENT DATE: 20220401
